FAERS Safety Report 17459856 (Version 1)
Quarter: 2020Q1

REPORT INFORMATION
  Report Type: Spontaneous
  Country: FR (occurrence: FR)
  Receive Date: 20200225
  Receipt Date: 20200225
  Transmission Date: 20200409
  Serious: Yes (Hospitalization)
  Sender: FDA-Public Use
  Company Number: FR-EXELIXIS-CABO-20027628

PATIENT
  Age: 55 Year
  Sex: Male
  Weight: 60 kg

DRUGS (7)
  1. RACECADOTRIL [Concomitant]
     Active Substance: RACECADOTRIL
     Dosage: 1 {DF}, AS NECESSARY
     Route: 048
  2. ESOMEPRAZOLE. [Concomitant]
     Active Substance: ESOMEPRAZOLE MAGNESIUM
     Dosage: 20 MG, QD
     Route: 048
  3. LOPERAMIDE [Concomitant]
     Active Substance: LOPERAMIDE
     Dosage: UNK
     Route: 048
  4. PREDNISOLONE. [Concomitant]
     Active Substance: PREDNISOLONE
     Dosage: 60 MG, QD
     Route: 048
  5. CABOMETYX [Suspect]
     Active Substance: CABOZANTINIB S-MALATE
     Indication: RENAL CANCER
     Dosage: 1 {DF}, QD
     Route: 048
     Dates: start: 20191107, end: 20191128
  6. DIOSMECTITE [Concomitant]
     Active Substance: MONTMORILLONITE
     Dosage: 3 {DF}, QD
     Route: 048
  7. PHLOROGLUCINOL [Concomitant]
     Active Substance: PHLOROGLUCINOL
     Dosage: 1 {DF}, QD
     Route: 002

REACTIONS (1)
  - Intestinal obstruction [Recovered/Resolved]

NARRATIVE: CASE EVENT DATE: 20191128
